FAERS Safety Report 4596768-4 (Version None)
Quarter: 2005Q1

REPORT INFORMATION
  Report Type: 
  Country: None (occurrence: None)
  Receive Date: 20050228
  Receipt Date: 20050218
  Transmission Date: 20050727
  Serious: Yes (Hospitalization)
  Sender: FDA-Public Use
  Company Number: E044-318-3719

PATIENT
  Age: 77 Year
  Sex: Male
  Weight: 70 kg

DRUGS (9)
  1. DONEPEZIL HCL [Suspect]
     Indication: DEMENTIA
     Dosage: 5 MG, 1 IN 1 D, ORAL
     Route: 048
     Dates: start: 20041124, end: 20050211
  2. DONEPEZIL/PLACEBO (DONEPEZIL HYDROCHLORIDE) [Suspect]
     Indication: DEMENTIA
     Dosage: DOUBLEBLIND, 1 IN 1 D, ORAL
     Route: 048
     Dates: start: 20040519, end: 20041123
  3. SELEGILINE HCL [Concomitant]
  4. DOMPERIDONE [Concomitant]
  5. PANTOPRAZOLE SODIUM [Concomitant]
  6. PERINDOPRIL ERBUMINE [Concomitant]
  7. COLCHICINE [Concomitant]
  8. LEVOTHYROXINE [Concomitant]
  9. LEVODOPA CR [Concomitant]

REACTIONS (6)
  - DUODENAL ULCER [None]
  - GASTRIC ULCER [None]
  - GASTROINTESTINAL STENOSIS [None]
  - GASTROOESOPHAGEAL REFLUX DISEASE [None]
  - HAEMATEMESIS [None]
  - INTESTINAL OBSTRUCTION [None]
